FAERS Safety Report 8606297-6 (Version None)
Quarter: 2012Q3

REPORT INFORMATION
  Report Type: 
  Country: None (occurrence: None)
  Receive Date: 20120820
  Receipt Date: 20120816
  Transmission Date: 20120928
  Serious: Yes (Death)
  Sender: FDA-Public Use
  Company Number: BR-ROCHE-1103109

PATIENT
  Sex: Male

DRUGS (8)
  1. MABTHERA [Suspect]
     Route: 065
     Dates: start: 20101001
  2. MABTHERA [Suspect]
     Route: 065
     Dates: start: 20120322
  3. MABTHERA [Suspect]
     Route: 065
     Dates: start: 20110715
  4. MABTHERA [Suspect]
     Route: 065
     Dates: start: 20101101
  5. MABTHERA [Suspect]
     Route: 065
     Dates: start: 20120308
  6. MABTHERA [Suspect]
     Indication: SYSTEMIC LUPUS ERYTHEMATOSUS
     Route: 065
     Dates: start: 20100401
  7. MABTHERA [Suspect]
     Route: 065
     Dates: start: 20100415
  8. MABTHERA [Suspect]
     Route: 065
     Dates: start: 20110627

REACTIONS (1)
  - DEATH [None]
